FAERS Safety Report 22385715 (Version 1)
Quarter: 2023Q2

REPORT INFORMATION
  Report Type: Spontaneous
  Country: GB (occurrence: GB)
  Receive Date: 20230530
  Receipt Date: 20230530
  Transmission Date: 20230722
  Serious: Yes (Other)
  Sender: FDA-Public Use
  Company Number: None

PATIENT
  Age: 87 Year
  Sex: Male
  Weight: 93 kg

DRUGS (15)
  1. LANSOPRAZOLE [Suspect]
     Active Substance: LANSOPRAZOLE
     Indication: Product used for unknown indication
     Dosage: 30 MILLIGRAM, QD
     Dates: start: 20230207
  2. ASPIRIN [Concomitant]
     Active Substance: ASPIRIN
     Dosage: ONE TABLET TO BE TAKEN ONCE A DAY TO HELP PREV...
     Dates: start: 20230207
  3. ATORVASTATIN [Concomitant]
     Active Substance: ATORVASTATIN
     Indication: Blood cholesterol increased
     Dosage: 1 DOSAGE FORM, QD
     Dates: start: 20230207
  4. BISOPROLOL [Concomitant]
     Active Substance: BISOPROLOL
     Dosage: 1 DOSAGE FORM, QD
     Dates: start: 20230207
  5. BECLOMETHASONE DIPROPIONATE [Concomitant]
     Active Substance: BECLOMETHASONE DIPROPIONATE
     Dosage: TWO PUFFS. (PLEASE RE...
     Route: 055
     Dates: start: 20230403
  6. CLOPIDOGREL [Concomitant]
     Active Substance: CLOPIDOGREL BISULFATE
     Dosage: 1 DOSAGE FORM, QD
     Dates: start: 20230207
  7. DERMOL [Concomitant]
     Active Substance: BENZALKONIUM CHLORIDE\CHLORHEXIDINE HYDROCHLORIDE\ISOPROPYL MYRISTATE\PARAFFIN
     Dosage: TO BE APPLIED LIBERALLY TO DRY SKIN OR USED AS...
     Dates: start: 20220510
  8. DOXYCYCLINE [Concomitant]
     Active Substance: DOXYCYCLINE
     Dosage: TWO CAPSULES TO BE TAKEN IMMEDIATELY THEN ONE CAPSULE TO BE TAKEN ONCE A DAY AS DIRECTED
     Dates: start: 20230403, end: 20230410
  9. FELODIPINE [Concomitant]
     Active Substance: FELODIPINE
     Indication: Hypertension
     Dosage: 1 DOSAGE FORM, QD
     Dates: start: 20220510
  10. LOSARTAN [Concomitant]
     Active Substance: LOSARTAN
     Dosage: 25MG ONE DAILY ISSUED BY CARDIO SDH. ONE TABLET TO BE TAKEN ONCE A DAY TO REDUCE BL...
     Dates: start: 20230503
  11. PANTOPRAZOLE [Concomitant]
     Active Substance: PANTOPRAZOLE
     Dosage: TAKE ONE DAILY
     Dates: start: 20230503
  12. RAMIPRIL [Concomitant]
     Active Substance: RAMIPRIL
     Dosage: 1 DOSAGE FORM, QD
     Dates: start: 20230207, end: 20230503
  13. TAMSULOSIN HYDROCHLORIDE [Concomitant]
     Active Substance: TAMSULOSIN HYDROCHLORIDE
     Dosage: 1 DOSAGE FORM, QD
     Dates: start: 20220510
  14. TOLTERODINE TARTRATE [Concomitant]
     Active Substance: TOLTERODINE TARTRATE
     Indication: Pollakiuria
     Dosage: 1 DOSAGE FORM, QD
     Dates: start: 20220510
  15. TRIMOVATE [Concomitant]
     Active Substance: CLOBETASONE BUTYRATE\NYSTATIN\OXYTETRACYCLINE CALCIUM
     Dosage: TO BE APPLIED THINLY TO THE AFFECTED AREA(S) ON...
     Route: 061
     Dates: start: 20220510

REACTIONS (2)
  - Diarrhoea [Recovered/Resolved]
  - Urinary incontinence [Recovered/Resolved]
